FAERS Safety Report 4713213-6 (Version None)
Quarter: 2005Q3

REPORT INFORMATION
  Report Type: 
  Country: None (occurrence: None)
  Receive Date: 20050713
  Receipt Date: 20050704
  Transmission Date: 20060218
  Serious: Yes (Hospitalization)
  Sender: FDA-Public Use
  Company Number: PHBS2005AR09740

PATIENT
  Age: 54 Year
  Sex: Male

DRUGS (2)
  1. TEGRETOL [Suspect]
     Indication: MOOD SWINGS
     Route: 065
  2. TEGRETOL [Suspect]
     Route: 065
     Dates: start: 20050613

REACTIONS (7)
  - ALANINE AMINOTRANSFERASE INCREASED [None]
  - ASPARTATE AMINOTRANSFERASE INCREASED [None]
  - LYMPHADENOPATHY [None]
  - MUCOUS MEMBRANE DISORDER [None]
  - PYREXIA [None]
  - RASH [None]
  - STATUS EPILEPTICUS [None]
